FAERS Safety Report 6161783-6 (Version None)
Quarter: 2009Q2

REPORT INFORMATION
  Report Type: 
  Country: None (occurrence: None)
  Receive Date: 20090421
  Receipt Date: 20090417
  Transmission Date: 20091009
  Serious: Yes (Death)
  Sender: FDA-Public Use
  Company Number: IT-ROCHE-624820

PATIENT
  Sex: Male

DRUGS (4)
  1. ROCEPHIN [Suspect]
     Indication: BRONCHITIS
     Route: 030
     Dates: start: 20090327, end: 20090327
  2. ACETYLSALICYLIC ACID SRT [Concomitant]
  3. THIAMAZOLE [Concomitant]
  4. AMLODIPINE [Concomitant]

REACTIONS (1)
  - BRONCHITIS [None]
